FAERS Safety Report 25154289 (Version 5)
Quarter: 2025Q3

REPORT INFORMATION
  Report Type: Report from Study
  Country: US (occurrence: US)
  Receive Date: 20250403
  Receipt Date: 20250704
  Transmission Date: 20251020
  Serious: Yes (Other)
  Sender: SUNOVION
  Company Number: US-SMPA-2025SPA002831AA

PATIENT

DRUGS (2)
  1. ORGOVYX [Suspect]
     Active Substance: RELUGOLIX
     Indication: Prostate cancer
     Route: 048
  2. ORGOVYX [Suspect]
     Active Substance: RELUGOLIX
     Dosage: 120 MG, QD
     Route: 048
     Dates: start: 20250220

REACTIONS (15)
  - Loss of consciousness [Unknown]
  - Memory impairment [Unknown]
  - Brain fog [Unknown]
  - Injury [Unknown]
  - Hypotension [Unknown]
  - Euphoric mood [Unknown]
  - Paroxysmal perceptual alteration [Unknown]
  - Paraesthesia [Unknown]
  - Irritability [Unknown]
  - Gastroenteritis radiation [Unknown]
  - Post procedural diarrhoea [Unknown]
  - Bowel movement irregularity [Unknown]
  - Abdominal pain [Unknown]
  - Arthralgia [Unknown]
  - Fatigue [Unknown]

NARRATIVE: CASE EVENT DATE: 20250501
